FAERS Safety Report 4982622-2 (Version None)
Quarter: 2006Q2

REPORT INFORMATION
  Report Type: 
  Country: None (occurrence: None)
  Receive Date: 20060419
  Receipt Date: 20060330
  Transmission Date: 20061013
  Serious: Yes (Other)
  Sender: FDA-Public Use
  Company Number: US200604000079

PATIENT
  Sex: Male

DRUGS (2)
  1. HUMALOG PEN [Suspect]
  2. HUMALOG PEN [Concomitant]

REACTIONS (4)
  - BONE PAIN [None]
  - DRUG INEFFECTIVE [None]
  - METASTASES TO BONE [None]
  - PHARMACEUTICAL PRODUCT COMPLAINT [None]
